FAERS Safety Report 7718312-2 (Version None)
Quarter: 2011Q3

REPORT INFORMATION
  Report Type: 
  Country: None (occurrence: None)
  Receive Date: 20110817
  Receipt Date: 20110519
  Transmission Date: 20111222
  Serious: Yes (Hospitalization, Other)
  Sender: FDA-Public Use
  Company Number: 20109061

PATIENT
  Sex: Male

DRUGS (1)
  1. LIORESAL [Suspect]
     Indication: MUSCLE SPASTICITY
     Dosage: DAILY, INTRATHECAL
     Route: 037

REACTIONS (8)
  - CONDITION AGGRAVATED [None]
  - OVERDOSE [None]
  - LETHARGY [None]
  - URINARY TRACT INFECTION [None]
  - HOSPITALISATION [None]
  - THERAPEUTIC RESPONSE INCREASED [None]
  - MUSCLE SPASTICITY [None]
  - GAIT DISTURBANCE [None]
